FAERS Safety Report 5028958-0 (Version None)
Quarter: 2006Q2

REPORT INFORMATION
  Report Type: 
  Country: None (occurrence: None)
  Receive Date: 20060619
  Receipt Date: 20060510
  Transmission Date: 20061013
  Serious: Yes (Life-Threatening, Hospitalization, Disabling)
  Sender: FDA-Public Use
  Company Number: PHBS2006JP07138

PATIENT
  Age: 73 Year
  Sex: Female
  Weight: 45 kg

DRUGS (8)
  1. URSO [Concomitant]
     Indication: HEPATITIS C
     Dosage: 300 MG/DAY
     Route: 048
     Dates: end: 20041213
  2. MONILAC [Concomitant]
     Indication: HYPERAMMONAEMIA
     Dosage: 30 MLS/DAY
     Route: 048
     Dates: end: 20041213
  3. ALOSENN [Concomitant]
     Indication: CONSTIPATION
     Dosage: 1G/DAY
     Route: 048
     Dates: end: 20041213
  4. GASMOTIN [Concomitant]
     Indication: DECREASED APPETITE
     Dosage: 1.5 G/DAY
     Route: 048
     Dates: start: 20041206, end: 20041213
  5. ASCOMP [Concomitant]
     Indication: DECREASED APPETITE
     Dosage: 300 MG/DAY
     Route: 048
     Dates: start: 20041206, end: 20041213
  6. VOLTAREN [Suspect]
     Indication: OSTEOARTHRITIS
     Dosage: 75 MG/DAY
     Route: 048
     Dates: start: 20040801, end: 20041212
  7. ALUSA [Concomitant]
     Dosage: 300 MG/DAY
     Route: 048
  8. LIVACT [Concomitant]
     Indication: HEPATITIS C
     Dosage: 14.22 G/DAY
     Route: 048
     Dates: end: 20041213

REACTIONS (22)
  - ABDOMINAL DISTENSION [None]
  - ABDOMINAL PAIN [None]
  - ACUTE RESPIRATORY FAILURE [None]
  - ANOREXIA [None]
  - ARTIFICIAL ANUS [None]
  - BILIRUBIN CONJUGATED INCREASED [None]
  - BLOOD ALBUMIN DECREASED [None]
  - BLOOD CALCIUM DECREASED [None]
  - BLOOD CHLORIDE DECREASED [None]
  - BLOOD CREATININE INCREASED [None]
  - BLOOD GLUCOSE INCREASED [None]
  - BLOOD LACTATE DEHYDROGENASE INCREASED [None]
  - BLOOD SODIUM DECREASED [None]
  - BLOOD UREA INCREASED [None]
  - C-REACTIVE PROTEIN INCREASED [None]
  - CREATINE PHOSPHOKINASE DECREASED [None]
  - INTESTINAL RESECTION [None]
  - LARGE INTESTINE PERFORATION [None]
  - LIFE SUPPORT [None]
  - PROTEIN TOTAL DECREASED [None]
  - TRACHEOSTOMY [None]
  - WHITE BLOOD CELL COUNT INCREASED [None]
